FAERS Safety Report 10531253 (Version 5)
Quarter: 2014Q4

REPORT INFORMATION
  Report Type: Spontaneous
  Country: US (occurrence: US)
  Receive Date: 20141021
  Receipt Date: 20141209
  Transmission Date: 20150529
  Serious: Yes (Hospitalization, Other)
  Sender: FDA-Public Use
  Company Number: US-009507513-1410USA008274

PATIENT
  Sex: Female

DRUGS (4)
  1. PRILOSEC [Concomitant]
     Active Substance: OMEPRAZOLE MAGNESIUM
     Indication: GASTROOESOPHAGEAL REFLUX DISEASE
     Dosage: UNK
     Dates: start: 1985
  2. FOSAMAX PLUS D [Suspect]
     Active Substance: ALENDRONATE SODIUM\CHOLECALCIFEROL
     Indication: OSTEOPOROSIS
     Dosage: 70 MG, QW
     Route: 048
     Dates: start: 20070331, end: 20090323
  3. FOSAMAX [Suspect]
     Active Substance: ALENDRONATE SODIUM
     Indication: OSTEOPOROSIS
     Dosage: 70 MG, QW
     Route: 048
     Dates: start: 2000, end: 20070331
  4. ALENDRONATE SODIUM. [Suspect]
     Active Substance: ALENDRONATE SODIUM
     Indication: OSTEOPOROSIS
     Dosage: 70 MG, QW
     Route: 048
     Dates: start: 20090323, end: 200906

REACTIONS (21)
  - Open reduction of fracture [Unknown]
  - Femur fracture [Unknown]
  - Anxiety [Not Recovered/Not Resolved]
  - Obsessive-compulsive disorder [Not Recovered/Not Resolved]
  - Lower limb fracture [Unknown]
  - Diabetes mellitus [Unknown]
  - Bladder operation [Unknown]
  - Femur fracture [Unknown]
  - Bladder cancer [Unknown]
  - Dementia [Not Recovered/Not Resolved]
  - Hip fracture [Recovered/Resolved]
  - Intramedullary rod insertion [Unknown]
  - Knee arthroplasty [Unknown]
  - Incision site infection [Unknown]
  - Debridement [Unknown]
  - Ankle fracture [Unknown]
  - Osteoarthritis [Unknown]
  - Open reduction of fracture [Unknown]
  - Arthritis [Unknown]
  - Open reduction of fracture [Unknown]
  - Depression [Not Recovered/Not Resolved]

NARRATIVE: CASE EVENT DATE: 2004
